FAERS Safety Report 4337507-1 (Version None)
Quarter: 2004Q2

REPORT INFORMATION
  Report Type: 
  Country: None (occurrence: None)
  Receive Date: 20040408
  Receipt Date: 20040322
  Transmission Date: 20050107
  Serious: Yes (Other)
  Sender: FDA-Public Use
  Company Number: B0327582A

PATIENT
  Age: 64 Year
  Sex: Female

DRUGS (6)
  1. NICODERM CQ [Suspect]
     Indication: EX-SMOKER
     Dosage: PER DAY / TRANSDERMAL
     Route: 062
     Dates: start: 20040201
  2. NICODERM CQ [Suspect]
     Indication: EX-SMOKER
     Dosage: PER DAY / TRANSDERMAL
     Route: 062
     Dates: start: 20040201
  3. THYROXINE SODIUM [Concomitant]
  4. GLIMEPIRIDE [Concomitant]
  5. SIMVASTATIN [Concomitant]
  6. FLUPENTHIXOL [Concomitant]

REACTIONS (3)
  - BLOOD GLUCOSE FLUCTUATION [None]
  - URINE KETONE BODY PRESENT [None]
  - VISUAL ACUITY REDUCED [None]
